FAERS Safety Report 9263432 (Version 2)
Quarter: 2013Q2

REPORT INFORMATION
  Report Type: Spontaneous
  Country: US (occurrence: US)
  Receive Date: 20130430
  Receipt Date: 20130611
  Transmission Date: 20140414
  Serious: Yes (Other)
  Sender: FDA-Public Use
  Company Number: US-AMGEN-USASP2013029166

PATIENT
  Age: 75 Year
  Sex: Female

DRUGS (5)
  1. PROLIA [Suspect]
     Indication: OSTEOPOROSIS POSTMENOPAUSAL
     Dosage: UNK
     Dates: start: 201211
  2. INDERAL [Concomitant]
  3. ASPIRIN [Concomitant]
  4. CALCIUM [Concomitant]
  5. GLUCOSAMINE [Concomitant]

REACTIONS (3)
  - Osteonecrosis of jaw [Unknown]
  - Dysphagia [Unknown]
  - Bone density abnormal [Unknown]
